FAERS Safety Report 12798662 (Version 1)
Quarter: 2016Q3

REPORT INFORMATION
  Report Type: Spontaneous
  Country: US (occurrence: US)
  Receive Date: 20160930
  Receipt Date: 20160930
  Transmission Date: 20161109
  Serious: No
  Sender: FDA-Public Use
  Company Number: US-TAKEDA-2016TUS016915

PATIENT
  Age: 62 Year
  Sex: Female
  Weight: 66.67 kg

DRUGS (7)
  1. XANAX [Concomitant]
     Active Substance: ALPRAZOLAM
     Indication: ANXIETY
     Dosage: 6 MG, QD
     Route: 048
     Dates: start: 2005, end: 20160801
  2. TRINTELLIX [Suspect]
     Active Substance: VORTIOXETINE HYDROBROMIDE
     Indication: ANXIETY
     Dosage: 5 MG, QD
     Route: 048
     Dates: start: 20160801, end: 20160804
  3. XANAX [Concomitant]
     Active Substance: ALPRAZOLAM
     Dosage: 5 MG, QD
     Route: 048
     Dates: start: 20160801, end: 20160804
  4. ASPIRIN                            /00002701/ [Concomitant]
     Active Substance: ASPIRIN
     Indication: JOINT STIFFNESS
     Dosage: 325 MG, UNK
     Route: 048
  5. XANAX [Concomitant]
     Active Substance: ALPRAZOLAM
     Dosage: 6 MG, QD
     Route: 048
     Dates: start: 20160804
  6. ASPIRIN                            /00002701/ [Concomitant]
     Active Substance: ASPIRIN
     Indication: ARTHRALGIA
  7. SPIRONOLACTONE. [Concomitant]
     Active Substance: SPIRONOLACTONE
     Dosage: 25 MG, BID
     Route: 048
     Dates: start: 1981

REACTIONS (13)
  - Vertigo [Recovering/Resolving]
  - Arthralgia [Recovered/Resolved]
  - Tongue disorder [Recovered/Resolved]
  - Impaired driving ability [Unknown]
  - Tremor [Recovered/Resolved]
  - Dysarthria [Recovered/Resolved]
  - Balance disorder [Recovering/Resolving]
  - Speech disorder [Recovered/Resolved]
  - Off label use [Recovered/Resolved]
  - Vision blurred [Recovered/Resolved]
  - Reading disorder [Recovered/Resolved]
  - Dizziness [Recovering/Resolving]
  - Sleep terror [Recovered/Resolved]

NARRATIVE: CASE EVENT DATE: 20160801
